FAERS Safety Report 16047009 (Version 3)
Quarter: 2019Q1

REPORT INFORMATION
  Report Type: Spontaneous
  Country: US (occurrence: US)
  Receive Date: 20190307
  Receipt Date: 20190327
  Transmission Date: 20190418
  Serious: Yes (Other)
  Sender: FDA-Public Use
  Company Number: US-BAYER-2019-046901

PATIENT
  Age: 22 Year
  Sex: Female

DRUGS (2)
  1. MIRENA [Suspect]
     Active Substance: LEVONORGESTREL
     Indication: MENORRHAGIA
  2. MIRENA [Suspect]
     Active Substance: LEVONORGESTREL
     Indication: MENORRHAGIA
     Dosage: 20 MCG/24HR, CONT
     Route: 015
     Dates: start: 20190214, end: 20190304

REACTIONS (7)
  - Post procedural haemorrhage [None]
  - Device expulsion [Recovered/Resolved]
  - Coital bleeding [None]
  - Procedural pain [None]
  - Vaginal odour [None]
  - Medical device pain [None]
  - Abdominal pain lower [None]

NARRATIVE: CASE EVENT DATE: 20190227
